FAERS Safety Report 13017521 (Version 1)
Quarter: 2016Q4

REPORT INFORMATION
  Report Type: Spontaneous
  Country: FR (occurrence: FR)
  Receive Date: 20161212
  Receipt Date: 20161212
  Transmission Date: 20170207
  Serious: Yes (Hospitalization)
  Sender: FDA-Public Use
  Company Number: FR-SA-2016SA220970

PATIENT
  Age: 44 Year
  Sex: Female

DRUGS (5)
  1. PARACETAMOL [Suspect]
     Active Substance: ACETAMINOPHEN
     Indication: PAIN
     Route: 048
     Dates: start: 2016
  2. DOLIPRANE [Suspect]
     Active Substance: ACETAMINOPHEN
     Indication: PYREXIA
     Route: 048
     Dates: start: 20161020, end: 20161023
  3. ATARAX [Suspect]
     Active Substance: HYDROXYZINE\HYDROXYZINE HYDROCHLORIDE
     Indication: ANXIETY
     Route: 048
     Dates: start: 20161020, end: 20161023
  4. PIRILENE [Suspect]
     Active Substance: PYRAZINAMIDE
     Indication: ERYTHEMA INDURATUM
     Route: 048
     Dates: start: 20160919, end: 20161013
  5. RIFINAH [Suspect]
     Active Substance: ISONIAZID\RIFAMPIN
     Indication: ERYTHEMA INDURATUM
     Dosage: STRENGTH- 300/150 MG
     Route: 048
     Dates: start: 20160919, end: 20161013

REACTIONS (3)
  - Hepatocellular injury [Recovering/Resolving]
  - Blood bilirubin increased [Not Recovered/Not Resolved]
  - Adverse reaction [Recovering/Resolving]

NARRATIVE: CASE EVENT DATE: 20161011
